FAERS Safety Report 22044306 (Version 1)
Quarter: 2023Q1

REPORT INFORMATION
  Report Type: Spontaneous
  Country: IT (occurrence: IT)
  Receive Date: 20230228
  Receipt Date: 20230228
  Transmission Date: 20230418
  Serious: Yes (Hospitalization, Other)
  Sender: FDA-Public Use
  Company Number: IT-CELLTRION HEALTHCARE HUNGARY KFT-2023IT002557

PATIENT
  Age: 75 Year
  Sex: Male

DRUGS (7)
  1. RITONAVIR [Suspect]
     Active Substance: RITONAVIR
     Indication: SARS-CoV-2 viraemia
     Dosage: 100 MILLIGRAM, BID (100 MILLIGRAM, BID)
     Route: 048
  2. PREDNISONE [Suspect]
     Active Substance: PREDNISONE
     Indication: Granulomatosis with polyangiitis
     Dosage: 5 MILLIGRAM, QD (5 MILLIGRAM, QD)
     Route: 065
  3. SOTROVIMAB [Suspect]
     Active Substance: SOTROVIMAB
     Indication: SARS-CoV-2 viraemia
     Dosage: 500 MILLIGRAM (500 MILLIGRAM)
     Route: 042
  4. NIRMATRELVIR [Suspect]
     Active Substance: NIRMATRELVIR
     Indication: SARS-CoV-2 viraemia
     Dosage: 300 MILLIGRAM, BID (300 MILLIGRAM, BID)
     Route: 048
  5. RITUXIMAB [Suspect]
     Active Substance: RITUXIMAB
     Indication: Granulomatosis with polyangiitis
     Dosage: 500 MILLIGRAM (500 MILLIGRAM, EVERY 6 MONTHS)
     Route: 065
     Dates: end: 202112
  6. REMDESIVIR [Suspect]
     Active Substance: REMDESIVIR
     Indication: SARS-CoV-2 viraemia
     Dosage: 200 MILLIGRAM (200 MILLIGRAM)
     Route: 042
  7. REMDESIVIR [Suspect]
     Active Substance: REMDESIVIR
     Dosage: 100 MILLIGRAM, (100 MILLIGRAM)
     Route: 042

REACTIONS (5)
  - COVID-19 [Recovered/Resolved]
  - Immunodeficiency [Unknown]
  - SARS-CoV-2 viraemia [Recovered/Resolved]
  - Interstitial lung disease [Recovered/Resolved]
  - COVID-19 pneumonia [Recovered/Resolved]

NARRATIVE: CASE EVENT DATE: 20220101
